FAERS Safety Report 21700710 (Version 1)
Quarter: 2022Q4

REPORT INFORMATION
  Report Type: Report from Study
  Country: IT (occurrence: IT)
  Receive Date: 20221208
  Receipt Date: 20221208
  Transmission Date: 20230112
  Serious: Yes (Other)
  Sender: FDA-Public Use
  Company Number: None

PATIENT
  Age: 67 Year
  Sex: Male

DRUGS (2)
  1. AMOXICILLIN [Suspect]
     Active Substance: AMOXICILLIN
     Indication: Cough
     Dosage: FIRST ANTIBIOTIC INTAKE TODAY WITH SYMPTOMS APPEARING
     Dates: start: 20221103, end: 20221103
  2. AMOXICILLIN [Suspect]
     Active Substance: AMOXICILLIN
     Indication: Oropharyngeal pain

REACTIONS (4)
  - Dyspnoea [Recovered/Resolved]
  - Rash [Recovered/Resolved]
  - Vomiting [Recovered/Resolved]
  - Nausea [Recovered/Resolved]

NARRATIVE: CASE EVENT DATE: 20221103
